FAERS Safety Report 6794768-7 (Version None)
Quarter: 2010Q2

REPORT INFORMATION
  Report Type: 
  Country: None (occurrence: None)
  Receive Date: 20100624
  Receipt Date: 20100624
  Transmission Date: 20101027
  Serious: Yes (Other)
  Sender: FDA-Public Use
  Company Number: None

PATIENT
  Age: 56 Year
  Sex: Female
  Weight: 90.7194 kg

DRUGS (2)
  1. ACTONEL [Suspect]
     Indication: BONE DENSITY DECREASED
     Dosage: 150 MGS ONCE A MONTH; THE DOSE IS FOR 30 DAYS
     Dates: start: 20100620, end: 20100623
  2. ACTONEL [Suspect]
     Indication: OSTEOPENIA
     Dosage: 150 MGS ONCE A MONTH; THE DOSE IS FOR 30 DAYS
     Dates: start: 20100620, end: 20100623

REACTIONS (6)
  - BODY TEMPERATURE INCREASED [None]
  - CHILLS [None]
  - FATIGUE [None]
  - HEADACHE [None]
  - IMPAIRED WORK ABILITY [None]
  - INFLUENZA [None]
